FAERS Safety Report 21986523 (Version 1)
Quarter: 2023Q1

REPORT INFORMATION
  Report Type: Spontaneous
  Country: US (occurrence: None)
  Receive Date: 20230212
  Receipt Date: 20230212
  Transmission Date: 20230418
  Serious: Yes (unspecified)
  Sender: FDA-Public Use
  Company Number: None

PATIENT
  Age: 33 Year
  Sex: Female
  Weight: 110.25 kg

DRUGS (2)
  1. MIRENA [Suspect]
     Active Substance: LEVONORGESTREL
     Indication: Intrauterine contraception
     Dates: start: 20150409, end: 20220409
  2. IBUPROFEN [Concomitant]
     Active Substance: IBUPROFEN

REACTIONS (19)
  - Migraine [None]
  - Agoraphobia [None]
  - Weight increased [None]
  - Papilloedema [None]
  - Tendon laxity [None]
  - Suicidal ideation [None]
  - Panic reaction [None]
  - Crying [None]
  - Ligament rupture [None]
  - Muscle strain [None]
  - Ligament sprain [None]
  - Pain [None]
  - Headache [None]
  - Fatigue [None]
  - Vomiting [None]
  - Drug dependence [None]
  - Tension [None]
  - Joint noise [None]
  - Joint dislocation [None]
